FAERS Safety Report 7286284-3 (Version None)
Quarter: 2011Q1

REPORT INFORMATION
  Report Type: 
  Country: None (occurrence: None)
  Receive Date: 20110210
  Receipt Date: 20110201
  Transmission Date: 20110831
  Serious: Yes (Hospitalization)
  Sender: FDA-Public Use
  Company Number: CA-JNJFOC-20110200996

PATIENT
  Sex: Male
  Weight: 55 kg

DRUGS (4)
  1. REMICADE [Suspect]
     Indication: ANKYLOSING SPONDYLITIS
     Route: 042
  2. ANTI HYPERTENSIVE MEDICATION [Concomitant]
  3. REMICADE [Suspect]
     Indication: CROHN'S DISEASE
     Route: 042
  4. IMURAN [Concomitant]
     Route: 048

REACTIONS (4)
  - INFUSION RELATED REACTION [None]
  - DIVERTICULUM [None]
  - DIVERTICULITIS [None]
  - HYPERTENSION [None]
